FAERS Safety Report 6181958-X (Version None)
Quarter: 2009Q2

REPORT INFORMATION
  Report Type: 
  Country: None (occurrence: None)
  Receive Date: 20090505
  Receipt Date: 20090423
  Transmission Date: 20091009
  Serious: Yes (Other)
  Sender: FDA-Public Use
  Company Number: 310021K09USA

PATIENT
  Sex: Female

DRUGS (1)
  1. GONAL-F [Suspect]
     Indication: ASSISTED FERTILISATION

REACTIONS (2)
  - ABORTION SPONTANEOUS [None]
  - DRUG EXPOSURE DURING PREGNANCY [None]
